FAERS Safety Report 10427999 (Version 1)
Quarter: 2014Q3

REPORT INFORMATION
  Report Type: Spontaneous
  Country: IN (occurrence: IN)
  Receive Date: 20140903
  Receipt Date: 20140903
  Transmission Date: 20150326
  Serious: Yes (Other)
  Sender: FDA-Public Use
  Company Number: IN-WATSON-2014-18906

PATIENT
  Age: 33 Year
  Sex: Male

DRUGS (1)
  1. METHYLPREDNISOLONE (UNKNOWN) [Suspect]
     Active Substance: METHYLPREDNISOLONE
     Indication: EOSINOPHILIC PNEUMONIA ACUTE
     Dosage: 40 MG, TID
     Route: 041

REACTIONS (1)
  - Sinus bradycardia [Recovered/Resolved]
